FAERS Safety Report 5609845-3 (Version None)
Quarter: 2008Q1

REPORT INFORMATION
  Report Type: 
  Country: None (occurrence: None)
  Receive Date: 20080131
  Receipt Date: 20080128
  Transmission Date: 20080703
  Serious: Yes (Death, Hospitalization)
  Sender: FDA-Public Use
  Company Number: US-BAXTER-2008BH000807

PATIENT
  Age: 81 Year
  Sex: Male

DRUGS (1)
  1. DIANEAL [Suspect]
     Indication: PERITONEAL DIALYSIS
     Dosage: DOSE UNIT:UNKNOWN
     Route: 033
     Dates: start: 20070514, end: 20071130

REACTIONS (6)
  - DIVERTICULITIS [None]
  - INTESTINAL PERFORATION [None]
  - MALAISE [None]
  - PERITONITIS BACTERIAL [None]
  - SEPSIS [None]
  - THERAPY CESSATION [None]
